FAERS Safety Report 9099745 (Version 3)
Quarter: 2013Q1

REPORT INFORMATION
  Report Type: Report from Study
  Country: US (occurrence: US)
  Receive Date: 20130214
  Receipt Date: 20130219
  Transmission Date: 20140127
  Serious: Yes (Death)
  Sender: FDA-Public Use
  Company Number: US-ROCHE-1190606

PATIENT
  Sex: Female

DRUGS (4)
  1. PEGASYS [Suspect]
     Indication: PRODUCT USED FOR UNKNOWN INDICATION
     Route: 065
  2. ZELBORAF [Suspect]
     Indication: MALIGNANT MELANOMA
     Route: 048
     Dates: start: 20130125, end: 20130209
  3. IBUPROFEN [Concomitant]
     Indication: PAIN
     Route: 048
  4. VICODIN [Concomitant]
     Indication: PAIN
     Route: 048

REACTIONS (1)
  - Metastatic malignant melanoma [Fatal]
